FAERS Safety Report 19194276 (Version 2)
Quarter: 2021Q2

REPORT INFORMATION
  Report Type: Spontaneous
  Country: US (occurrence: US)
  Receive Date: 20210429
  Receipt Date: 20210616
  Transmission Date: 20210717
  Serious: Yes (Other)
  Sender: FDA-Public Use
  Company Number: US-BAYER-2021-127515

PATIENT
  Age: 71 Year
  Sex: Female

DRUGS (10)
  1. ALEVE [Suspect]
     Active Substance: NAPROXEN SODIUM
     Indication: PAIN
     Dosage: UNK
     Route: 048
  2. MUCINEX DM [Concomitant]
     Active Substance: DEXTROMETHORPHAN HYDROBROMIDE\GUAIFENESIN
  3. IBUPROFEN. [Concomitant]
     Active Substance: IBUPROFEN
  4. ALEVE [Suspect]
     Active Substance: NAPROXEN SODIUM
     Dosage: UNK
  5. LISINOPRIL. [Concomitant]
     Active Substance: LISINOPRIL
  6. BAYER LOW DOSE [Suspect]
     Active Substance: ASPIRIN
  7. GABAPENTIN. [Concomitant]
     Active Substance: GABAPENTIN
  8. GENVOYA [Concomitant]
     Active Substance: COBICISTAT\ELVITEGRAVIR\EMTRICITABINE\TENOFOVIR ALAFENAMIDE FUMARATE
  9. MUCINEX [Concomitant]
     Active Substance: GUAIFENESIN
  10. DOAN^S BACKACHE PILLS [Concomitant]

REACTIONS (8)
  - Neuropathy peripheral [Unknown]
  - Pain [None]
  - Diplegia [None]
  - Drug ineffective [None]
  - Loss of consciousness [None]
  - Muscle spasms [None]
  - Nasopharyngitis [None]
  - Pain in extremity [None]
